FAERS Safety Report 21713144 (Version 1)
Quarter: 2022Q4

REPORT INFORMATION
  Report Type: Spontaneous
  Country: US (occurrence: None)
  Receive Date: 20221208
  Receipt Date: 20221208
  Transmission Date: 20230113
  Serious: Yes (Life-Threatening, Hospitalization)
  Sender: FDA-Public Use
  Company Number: None

PATIENT
  Age: 73 Year
  Sex: Male

DRUGS (1)
  1. APIXABAN [Suspect]
     Active Substance: APIXABAN
     Indication: Atrial fibrillation
     Dosage: FREQUENCY : TWICE A DAY;?
     Route: 048
     Dates: start: 20221018, end: 20221111

REACTIONS (11)
  - Renal mass [None]
  - Haematuria [None]
  - Dizziness [None]
  - Blood loss anaemia [None]
  - Dysuria [None]
  - Fatigue [None]
  - Renal cancer [None]
  - White blood cells urine positive [None]
  - Bacterial test positive [None]
  - Restless legs syndrome [None]
  - Iron deficiency [None]

NARRATIVE: CASE EVENT DATE: 20221111
